FAERS Safety Report 10662416 (Version 1)
Quarter: 2014Q4

REPORT INFORMATION
  Report Type: Spontaneous
  Country: US (occurrence: US)
  Receive Date: 20141218
  Receipt Date: 20141218
  Transmission Date: 20150529
  Serious: Yes (Other)
  Sender: FDA-Public Use
  Company Number: US-ROXANE LABORATORIES, INC.-2014-RO-01893RO

PATIENT
  Age: 39 Year
  Sex: Female

DRUGS (1)
  1. BALSALAZIDE [Suspect]
     Active Substance: BALSALAZIDE
     Indication: DRUG PROVOCATION TEST
     Route: 065

REACTIONS (3)
  - Pruritus generalised [Recovered/Resolved]
  - Peripheral swelling [Recovered/Resolved]
  - Flushing [Unknown]
